FAERS Safety Report 6766633-2 (Version None)
Quarter: 2010Q2

REPORT INFORMATION
  Report Type: 
  Country: None (occurrence: None)
  Receive Date: 20100611
  Receipt Date: 20100609
  Transmission Date: 20101027
  Serious: Yes (Hospitalization)
  Sender: FDA-Public Use
  Company Number: JP-BRISTOL-MYERS SQUIBB COMPANY-15141328

PATIENT
  Age: 66 Year

DRUGS (2)
  1. BRIPLATIN [Suspect]
     Indication: CERVIX CARCINOMA
     Dosage: CYCLE 4:60MG ON 19MAR2010 DROPPED OUT ON 08JUN2010
     Route: 042
     Dates: start: 20100218
  2. S-1 [Suspect]
     Indication: CERVIX CARCINOMA
     Dosage: CYCLE 4:120MG ON 13MAY10-26MAY10 DROPPED OUT ON 08JUN2010
     Route: 048
     Dates: start: 20100218

REACTIONS (1)
  - DEEP VEIN THROMBOSIS [None]
